FAERS Safety Report 6679063-9 (Version None)
Quarter: 2010Q2

REPORT INFORMATION
  Report Type: 
  Country: None (occurrence: None)
  Receive Date: 20100413
  Receipt Date: 20100402
  Transmission Date: 20101027
  Serious: Yes (Death)
  Sender: FDA-Public Use
  Company Number: US-BAXTER-2010BH008743

PATIENT
  Age: 65 Year
  Sex: Female

DRUGS (6)
  1. ARALAST NP [Suspect]
     Indication: ALPHA-1 ANTI-TRYPSIN DEFICIENCY
     Route: 042
     Dates: start: 20050201
  2. FORMOTEROL [Concomitant]
     Indication: BRONCHITIS CHRONIC
  3. PULMICORT [Concomitant]
     Indication: BRONCHITIS CHRONIC
  4. COMBIVENT /GFR/ [Concomitant]
     Indication: BRONCHITIS CHRONIC
  5. OXYGEN [Concomitant]
     Indication: CHRONIC OBSTRUCTIVE PULMONARY DISEASE
     Route: 055
  6. SYNTHROID [Concomitant]
     Indication: HYPOTHYROIDISM
     Route: 048

REACTIONS (1)
  - RESPIRATORY FAILURE [None]
